FAERS Safety Report 6262069-1 (Version None)
Quarter: 2009Q3

REPORT INFORMATION
  Report Type: 
  Country: None (occurrence: None)
  Receive Date: 20090707
  Receipt Date: 20090707
  Transmission Date: 20100115
  Serious: Yes (Hospitalization, Disabling)
  Sender: FDA-Public Use
  Company Number: None

PATIENT
  Age: 16 Year
  Sex: Male
  Weight: 72.5755 kg

DRUGS (6)
  1. CONCERTA [Suspect]
     Indication: ATTENTION DEFICIT/HYPERACTIVITY DISORDER
     Dosage: 2 TABLETS EVERY MORNING PO
     Route: 048
     Dates: start: 20000101, end: 20090617
  2. CONCERTA [Suspect]
     Indication: DEVELOPMENTAL DELAY
     Dosage: 2 TABLETS EVERY MORNING PO
     Route: 048
     Dates: start: 20000101, end: 20090617
  3. CONCERTA [Suspect]
     Indication: MENTAL RETARDATION
     Dosage: 2 TABLETS EVERY MORNING PO
     Route: 048
     Dates: start: 20000101, end: 20090617
  4. CONCERTA [Suspect]
     Indication: ATTENTION DEFICIT/HYPERACTIVITY DISORDER
     Dosage: 2 TABLETS EVERY MORNING PO
     Route: 048
     Dates: start: 20090702, end: 20090703
  5. CONCERTA [Suspect]
     Indication: DEVELOPMENTAL DELAY
     Dosage: 2 TABLETS EVERY MORNING PO
     Route: 048
     Dates: start: 20090702, end: 20090703
  6. CONCERTA [Suspect]
     Indication: MENTAL RETARDATION
     Dosage: 2 TABLETS EVERY MORNING PO
     Route: 048
     Dates: start: 20090702, end: 20090703

REACTIONS (2)
  - FEAR [None]
  - HALLUCINATIONS, MIXED [None]
